FAERS Safety Report 13729096 (Version 2)
Quarter: 2017Q3

REPORT INFORMATION
  Report Type: Spontaneous
  Country: PE (occurrence: PE)
  Receive Date: 20170707
  Receipt Date: 20170713
  Transmission Date: 20171127
  Serious: Yes (Disabling, Other)
  Sender: FDA-Public Use
  Company Number: PE-ROCHE-1958786

PATIENT
  Age: 74 Year
  Sex: Female

DRUGS (2)
  1. PULMOZYME [Suspect]
     Active Substance: DORNASE ALFA
     Indication: LUNG DISORDER
     Dosage: 14 AMPOULES
     Route: 065
     Dates: start: 201706
  2. PULMOZYME [Suspect]
     Active Substance: DORNASE ALFA
     Indication: IDIOPATHIC PULMONARY FIBROSIS
     Dosage: 14 AMPOULES
     Route: 065

REACTIONS (7)
  - Product use in unapproved indication [Unknown]
  - Oxygen saturation decreased [Not Recovered/Not Resolved]
  - Off label use [Unknown]
  - Pyrexia [Not Recovered/Not Resolved]
  - Cough [Not Recovered/Not Resolved]
  - Dyspnoea [Unknown]
  - Lung infection [Unknown]
